FAERS Safety Report 4847919-5 (Version None)
Quarter: 2005Q4

REPORT INFORMATION
  Report Type: 
  Country: None (occurrence: None)
  Receive Date: 20051205
  Receipt Date: 20051205
  Transmission Date: 20060501
  Serious: Yes (Other)
  Sender: FDA-Public Use
  Company Number: None

PATIENT
  Age: 44 Year
  Sex: Female
  Weight: 77.1115 kg

DRUGS (1)
  1. PAROXETENE  20 MG GLAXO SMITH KLINE [Suspect]
     Indication: DEPRESSION
     Dosage: 20 MG ONCE A DAY
     Dates: start: 19990907, end: 20051222

REACTIONS (4)
  - CRYING [None]
  - DRUG WITHDRAWAL SYNDROME [None]
  - FEELING ABNORMAL [None]
  - RESTLESSNESS [None]
